FAERS Safety Report 21005680 (Version 1)
Quarter: 2022Q2

REPORT INFORMATION
  Report Type: Spontaneous
  Country: GB (occurrence: GB)
  Receive Date: 20220624
  Receipt Date: 20220624
  Transmission Date: 20220721
  Serious: Yes (Other)
  Sender: FDA-Public Use
  Company Number: GB-AMERICAN REGENT INC-2022001778

PATIENT
  Age: 27 Year
  Sex: Female

DRUGS (1)
  1. FERINJECT [Suspect]
     Active Substance: FERRIC CARBOXYMALTOSE
     Indication: Haemoglobin decreased
     Dosage: 1000 MG
     Route: 042
     Dates: start: 20220613, end: 20220613

REACTIONS (2)
  - Maternal exposure during pregnancy [Unknown]
  - Rash [Unknown]

NARRATIVE: CASE EVENT DATE: 20220613
